FAERS Safety Report 14536682 (Version 1)
Quarter: 2018Q1

REPORT INFORMATION
  Report Type: Spontaneous
  Country: US (occurrence: US)
  Receive Date: 20180215
  Receipt Date: 20180215
  Transmission Date: 20180509
  Serious: Yes (Hospitalization)
  Sender: FDA-Public Use
  Company Number: None

PATIENT
  Age: 48 Year
  Sex: Female
  Weight: 101.5 kg

DRUGS (18)
  1. ADVAIR HFA [Concomitant]
     Active Substance: FLUTICASONE PROPIONATE\SALMETEROL XINAFOATE
  2. LUNESTA [Suspect]
     Active Substance: ESZOPICLONE
     Indication: BIPOLAR DISORDER
  3. VISTARIL [Suspect]
     Active Substance: HYDROXYZINE PAMOATE
  4. BACLOFEN. [Suspect]
     Active Substance: BACLOFEN
  5. ALBUTEROL. [Concomitant]
     Active Substance: ALBUTEROL
  6. MUCINEX [Concomitant]
     Active Substance: GUAIFENESIN
  7. REMERON [Suspect]
     Active Substance: MIRTAZAPINE
  8. ADDERALL [Concomitant]
     Active Substance: AMPHETAMINE ASPARTATE\AMPHETAMINE SULFATE\DEXTROAMPHETAMINE SACCHARATE\DEXTROAMPHETAMINE SULFATE
  9. FLONASE [Concomitant]
     Active Substance: FLUTICASONE PROPIONATE
  10. PHENERGAN [Concomitant]
     Active Substance: PROMETHAZINE HYDROCHLORIDE
  11. LYRICA [Suspect]
     Active Substance: PREGABALIN
  12. DEXTROSTAT [Suspect]
     Active Substance: DEXTROAMPHETAMINE SULFATE
  13. LASIX [Concomitant]
     Active Substance: FUROSEMIDE
  14. DEXEDRINE [Concomitant]
     Active Substance: DEXTROAMPHETAMINE SULFATE
  15. PEPCID [Concomitant]
     Active Substance: FAMOTIDINE
  16. XANAX [Suspect]
     Active Substance: ALPRAZOLAM
     Indication: BIPOLAR DISORDER
  17. LAMICTAL [Suspect]
     Active Substance: LAMOTRIGINE
  18. PERCOCET [Suspect]
     Active Substance: ACETAMINOPHEN\OXYCODONE HYDROCHLORIDE

REACTIONS (2)
  - Drug administration error [None]
  - Somnolence [None]

NARRATIVE: CASE EVENT DATE: 20170721
